FAERS Safety Report 18244140 (Version 3)
Quarter: 2020Q4

REPORT INFORMATION
  Report Type: Spontaneous
  Country: IT (occurrence: IT)
  Receive Date: 20200909
  Receipt Date: 20201027
  Transmission Date: 20210113
  Serious: Yes (Other)
  Sender: FDA-Public Use
  Company Number: IT-AUROBINDO-AUR-APL-2020-046671

PATIENT
  Age: 59 Year
  Sex: Male

DRUGS (6)
  1. PACLITAXEL. [Suspect]
     Active Substance: PACLITAXEL
     Indication: SALIVARY GLAND CANCER
     Dosage: 80 MILLIGRAM/SQ. METER, EVERY WEEK
     Route: 065
  2. TRASTUZUMAB. [Suspect]
     Active Substance: TRASTUZUMAB
     Indication: SALIVARY GLAND CANCER
     Dosage: 6 MILLIGRAM/KILOGRAM,CONTINUED WITH 3-WEEKLY TRASTUZUMAB (6 MG/KG) FOR 10 MONTHS.
     Route: 065
  3. TRASTUZUMAB. [Suspect]
     Active Substance: TRASTUZUMAB
     Dosage: 4 MILLIGRAM/KILOGRAM, 6 CYCLE, LOADING DOSE
     Route: 065
  4. CARBOPLATIN. [Suspect]
     Active Substance: CARBOPLATIN
     Dosage: UNK (SIX CYCLES, SECOND LINE)
     Route: 065
  5. CARBOPLATIN. [Suspect]
     Active Substance: CARBOPLATIN
     Indication: SALIVARY GLAND CANCER
     Dosage: UNK UNK, EVERY WEEK
     Route: 065
  6. TRASTUZUMAB. [Suspect]
     Active Substance: TRASTUZUMAB
     Dosage: 2 MILLIGRAM/KILOGRAM, 6 CYCLE
     Route: 065

REACTIONS (11)
  - Cardiac dysfunction [Unknown]
  - Epilepsy [Unknown]
  - Central nervous system lesion [Unknown]
  - Off label use [Unknown]
  - Ejection fraction decreased [Unknown]
  - Drug ineffective for unapproved indication [Unknown]
  - Intentional product use issue [Unknown]
  - Therapy partial responder [Unknown]
  - Headache [Unknown]
  - Anaemia [Unknown]
  - Asthenia [Unknown]

NARRATIVE: CASE EVENT DATE: 201912
